FAERS Safety Report 9470179 (Version 2)
Quarter: 2013Q4

REPORT INFORMATION
  Report Type: Spontaneous
  Country: US (occurrence: US)
  Receive Date: 20130822
  Receipt Date: 20131120
  Transmission Date: 20140711
  Serious: No
  Sender: FDA-Public Use
  Company Number: US-COVIDIEN/TYCO HEALTHCARE/MALLINCKRODT-T201303820

PATIENT
  Sex: Female

DRUGS (1)
  1. GABLOFEN [Suspect]
     Dosage: UNK
     Route: 008

REACTIONS (4)
  - Incorrect route of drug administration [Recovered/Resolved]
  - Underdose [Unknown]
  - Drug effect decreased [Unknown]
  - Device damage [Unknown]
